FAERS Safety Report 6884742-4 (Version None)
Quarter: 2010Q3

REPORT INFORMATION
  Report Type: 
  Country: None (occurrence: None)
  Receive Date: 20100729
  Receipt Date: 20070821
  Transmission Date: 20110219
  Serious: No
  Sender: FDA-Public Use
  Company Number: US-PFIZER INC-2007070437

PATIENT
  Sex: Male
  Weight: 89 kg

DRUGS (2)
  1. ACCUPRIL [Suspect]
     Indication: HYPERTENSION
     Dates: start: 20030101
  2. LIPITOR [Concomitant]

REACTIONS (1)
  - SOMNOLENCE [None]
